FAERS Safety Report 7544250-4 (Version None)
Quarter: 2011Q2

REPORT INFORMATION
  Report Type: 
  Country: None (occurrence: None)
  Receive Date: 20110613
  Receipt Date: 20070502
  Transmission Date: 20111010
  Serious: Yes (Life-Threatening, Hospitalization, Other)
  Sender: FDA-Public Use
  Company Number: PHHO2006AR20247

PATIENT
  Sex: Male

DRUGS (8)
  1. OMEPRAZOLE [Concomitant]
  2. SANDOSTATIN LAR [Suspect]
     Indication: ACROMEGALY
     Dosage: 20 MG, UNK
     Route: 030
     Dates: start: 20060919
  3. TELMISARTAN [Concomitant]
  4. HYDROCHLOROTHIAZIDE [Concomitant]
  5. CARVEDILOL [Concomitant]
  6. ASPIRIN [Concomitant]
  7. CIPROFLOXACIN [Concomitant]
  8. HEPARIN [Concomitant]

REACTIONS (3)
  - HYPONATRAEMIA [None]
  - URINARY TRACT OBSTRUCTION [None]
  - AORTIC STENOSIS [None]
